FAERS Safety Report 14831848 (Version 1)
Quarter: 2018Q2

REPORT INFORMATION
  Report Type: Spontaneous
  Country: US (occurrence: US)
  Receive Date: 20180415
  Receipt Date: 20180415
  Transmission Date: 20180711
  Serious: Yes (Other)
  Sender: FDA-Public Use
  Company Number: None

PATIENT
  Age: 54 Year
  Sex: Female
  Weight: 83.91 kg

DRUGS (1)
  1. INJECTAFER [Suspect]
     Active Substance: FERRIC CARBOXYMALTOSE

REACTIONS (6)
  - Rash macular [None]
  - Chest pain [None]
  - Infusion related reaction [None]
  - Nausea [None]
  - Hypotension [None]
  - Flushing [None]

NARRATIVE: CASE EVENT DATE: 20180414
